FAERS Safety Report 22297660 (Version 2)
Quarter: 2023Q2

REPORT INFORMATION
  Report Type: Spontaneous
  Country: GB (occurrence: GB)
  Receive Date: 20230509
  Receipt Date: 20230511
  Transmission Date: 20230722
  Serious: Yes (Life-Threatening, Hospitalization, Disabling, Other)
  Sender: FDA-Public Use
  Company Number: GB-MHRA-MED-202304210854211400-DSHWG

PATIENT
  Age: 15 Year
  Sex: Male

DRUGS (8)
  1. PHENYTOIN [Suspect]
     Active Substance: PHENYTOIN
     Indication: Partial seizures
     Route: 065
     Dates: start: 20180612, end: 20200625
  2. CARBAMAZEPINE [Suspect]
     Active Substance: CARBAMAZEPINE
     Indication: Seizure
     Route: 065
     Dates: start: 20160312, end: 20160429
  3. CLOBAZAM [Suspect]
     Active Substance: CLOBAZAM
     Indication: Seizure
     Route: 065
     Dates: start: 20180609, end: 20190416
  4. LACOSAMIDE [Suspect]
     Active Substance: LACOSAMIDE
     Indication: Seizure
     Route: 065
     Dates: start: 20180208, end: 20180811
  5. LAMOTRIGINE [Suspect]
     Active Substance: LAMOTRIGINE
     Indication: Adverse drug reaction
     Route: 065
     Dates: start: 20161012, end: 20180606
  6. LEVETIRACETAM [Suspect]
     Active Substance: LEVETIRACETAM
     Indication: Seizure
     Route: 065
     Dates: start: 20160429, end: 20170423
  7. LEVETIRACETAM [Suspect]
     Active Substance: LEVETIRACETAM
     Indication: Seizure
     Route: 065
     Dates: start: 20180616, end: 20190101
  8. VALPROATE SODIUM [Suspect]
     Active Substance: VALPROATE SODIUM
     Indication: Seizure
     Route: 065
     Dates: start: 20160429, end: 20160911

REACTIONS (11)
  - Fatigue [Recovered/Resolved]
  - Mental fatigue [Unknown]
  - Seizure cluster [Unknown]
  - Near death experience [Unknown]
  - Memory impairment [Recovered/Resolved]
  - Status epilepticus [Unknown]
  - Drug withdrawal convulsions [Unknown]
  - Seizure [Recovered/Resolved]
  - Condition aggravated [Unknown]
  - Medication error [Unknown]
  - Drug ineffective [Unknown]

NARRATIVE: CASE EVENT DATE: 20180812
